FAERS Safety Report 25624265 (Version 2)
Quarter: 2025Q3

REPORT INFORMATION
  Report Type: Report from Study
  Country: US (occurrence: US)
  Receive Date: 20250730
  Receipt Date: 20250829
  Transmission Date: 20251020
  Serious: Yes (Death)
  Sender: JAZZ
  Company Number: US-JAZZ PHARMACEUTICALS-2025-US-018582

PATIENT
  Age: 15 Year
  Sex: Male

DRUGS (3)
  1. EPIDIOLEX [Suspect]
     Active Substance: CANNABIDIOL
     Indication: Lennox-Gastaut syndrome
     Dosage: 4 MILLILITER, BID
     Dates: start: 202205
  2. CLOBAZAM [Concomitant]
     Active Substance: CLOBAZAM
     Indication: Product used for unknown indication
  3. XCOPRI [Concomitant]
     Active Substance: CENOBAMATE
     Indication: Product used for unknown indication

REACTIONS (1)
  - Death [Fatal]

NARRATIVE: CASE EVENT DATE: 20250724
